FAERS Safety Report 22299669 (Version 1)
Quarter: 2023Q2

REPORT INFORMATION
  Report Type: Spontaneous
  Country: US (occurrence: None)
  Receive Date: 20230508
  Receipt Date: 20230508
  Transmission Date: 20230722
  Serious: Yes (Other)
  Sender: FDA-Public Use
  Company Number: None

PATIENT
  Age: 9 Year
  Sex: Male
  Weight: 31.5 kg

DRUGS (2)
  1. PREDNISOLONE [Suspect]
     Active Substance: PREDNISOLONE
     Indication: Respiratory disorder
     Dosage: OTHER QUANTITY : 5 TEASPOON(S);?FREQUENCY : TWICE A DAY;?
     Route: 048
     Dates: start: 20230119, end: 20230122
  2. ALBUTEROL [Concomitant]
     Active Substance: ALBUTEROL

REACTIONS (3)
  - Influenza like illness [None]
  - Disease recurrence [None]
  - Multiple allergies [None]

NARRATIVE: CASE EVENT DATE: 20230119
